FAERS Safety Report 17807346 (Version 2)
Quarter: 2020Q3

REPORT INFORMATION
  Report Type: Spontaneous
  Country: US (occurrence: US)
  Receive Date: 20200520
  Receipt Date: 20200729
  Transmission Date: 20201102
  Serious: Yes (Hospitalization, Other)
  Sender: FDA-Public Use
  Company Number: US-ASTELLAS-2020US016610

PATIENT
  Age: 69 Year
  Sex: Male

DRUGS (3)
  1. MYRBETRIQ [Suspect]
     Active Substance: MIRABEGRON
     Dosage: UNK, UNKNOWN FREQ.
     Route: 065
  2. MYRBETRIQ [Suspect]
     Active Substance: MIRABEGRON
     Route: 048
     Dates: start: 202005, end: 202005
  3. MYRBETRIQ [Suspect]
     Active Substance: MIRABEGRON
     Indication: URINARY INCONTINENCE
     Dosage: UNK, UNKNOWN FREQ.
     Route: 065
     Dates: start: 2019

REACTIONS (5)
  - Urine flow decreased [Not Recovered/Not Resolved]
  - Heart valve incompetence [Recovered/Resolved]
  - Urine output decreased [Not Recovered/Not Resolved]
  - Cardiac failure [Recovered/Resolved]
  - Pulmonary oedema [Recovered/Resolved]

NARRATIVE: CASE EVENT DATE: 202004
